FAERS Safety Report 5212093-2 (Version None)
Quarter: 2007Q1

REPORT INFORMATION
  Report Type: 
  Country: None (occurrence: None)
  Receive Date: 20070118
  Receipt Date: 20070111
  Transmission Date: 20070707
  Serious: Yes (Hospitalization)
  Sender: FDA-Public Use
  Company Number: BE-BAXTER-2007BH000427

PATIENT
  Age: 71 Year
  Sex: Female
  Weight: 77 kg

DRUGS (15)
  1. EXTRANEAL [Suspect]
     Indication: PERITONEAL DIALYSIS
     Route: 033
     Dates: start: 20060912, end: 20070104
  2. EXTRANEAL [Suspect]
     Indication: DIABETIC END STAGE RENAL DISEASE
     Route: 033
     Dates: start: 20060912, end: 20070104
  3. EXTRANEAL [Suspect]
     Route: 033
     Dates: start: 20060912, end: 20070104
  4. EXTRANEAL [Suspect]
     Route: 033
     Dates: start: 20060912, end: 20070104
  5. EXTRANEAL [Suspect]
     Route: 033
     Dates: start: 20060912, end: 20070104
  6. EXTRANEAL [Suspect]
     Route: 033
     Dates: start: 20060912, end: 20070104
  7. MEDROL [Concomitant]
     Dates: start: 20060227
  8. BEFACT FORTE [Concomitant]
     Dates: start: 20060307
  9. OMEPRAZOLE [Concomitant]
     Dates: start: 20060307
  10. CORUNO [Concomitant]
     Dates: start: 20060307
  11. MARCUMAR [Concomitant]
     Dosage: DOSE UNIT:UNKNOWN
     Dates: start: 20060309
  12. ARANESP [Concomitant]
     Dosage: DOSE UNIT:UNKNOWN
     Dates: start: 20060309
  13. ALPHA ^LEO^ [Concomitant]
     Dates: start: 20030331
  14. LORMETAZEPAM [Concomitant]
     Dates: start: 20060806
  15. DIANEAL PD-1 [Concomitant]

REACTIONS (3)
  - BRADYCARDIA [None]
  - FLUID OVERLOAD [None]
  - HYPERKALAEMIA [None]
